FAERS Safety Report 12492386 (Version 1)
Quarter: 2016Q2

REPORT INFORMATION
  Report Type: Spontaneous
  Country: US (occurrence: US)
  Receive Date: 20160623
  Receipt Date: 20160623
  Transmission Date: 20160815
  Serious: Yes (Hospitalization)
  Sender: FDA-Public Use
  Company Number: US-PFIZER INC-2016307779

PATIENT
  Age: 50 Year
  Sex: Male
  Weight: 60.32 kg

DRUGS (1)
  1. IBRANCE [Suspect]
     Active Substance: PALBOCICLIB
     Indication: RENAL CELL CARCINOMA
     Dosage: 125 MG, CYCLIC (ONE CAPSULE FOR 21 DAYS IN A CYCLE OF 28 DAYS)
     Dates: start: 201605

REACTIONS (2)
  - Pleural effusion [Not Recovered/Not Resolved]
  - Product use issue [Unknown]
